FAERS Safety Report 6710340-9 (Version None)
Quarter: 2010Q2

REPORT INFORMATION
  Report Type: 
  Country: None (occurrence: None)
  Receive Date: 20100504
  Receipt Date: 20100423
  Transmission Date: 20101027
  Serious: Yes (Hospitalization, Other)
  Sender: FDA-Public Use
  Company Number: PHHY2010GB27890

PATIENT
  Sex: Female

DRUGS (1)
  1. TEGRETOL [Suspect]

REACTIONS (1)
  - HAEMOLYTIC ANAEMIA [None]
